FAERS Safety Report 5606633-9 (Version None)
Quarter: 2008Q1

REPORT INFORMATION
  Report Type: 
  Country: None (occurrence: None)
  Receive Date: 20080125
  Receipt Date: 20080115
  Transmission Date: 20080703
  Serious: Yes (Death, Hospitalization)
  Sender: FDA-Public Use
  Company Number: 20084665

PATIENT
  Age: 55 Year
  Sex: Female

DRUGS (1)
  1. LIORESAL [Suspect]
     Indication: MUSCLE SPASTICITY
     Dosage: 1047.0 MCG, DAILY, INTRATHECAL
     Route: 037

REACTIONS (2)
  - PNEUMONIA [None]
  - UNRESPONSIVE TO STIMULI [None]
